FAERS Safety Report 4388697-6 (Version None)
Quarter: 2004Q2

REPORT INFORMATION
  Report Type: 
  Country: None (occurrence: None)
  Receive Date: 20040624
  Receipt Date: 20040609
  Transmission Date: 20050107
  Serious: Yes (Death, Hospitalization)
  Sender: FDA-Public Use
  Company Number: 2004-BP-03835MX

PATIENT
  Age: 65 Year
  Sex: Male

DRUGS (5)
  1. SPIRIVA [Suspect]
     Indication: CHRONIC OBSTRUCTIVE AIRWAYS DISEASE
     Dosage: 18 MCG (18 MCG, 1 KAI OD) IH
     Route: 055
     Dates: start: 20030601, end: 20040101
  2. LANOXIN [Concomitant]
  3. CEPHALOSPORIN [Concomitant]
  4. THEOPHYLLINE [Concomitant]
  5. NON SPECIFIED EXPECTORANT [Concomitant]

REACTIONS (3)
  - CARDIAC ARREST [None]
  - PNEUMONIA [None]
  - RENAL FAILURE [None]
